FAERS Safety Report 25163147 (Version 1)
Quarter: 2025Q2

REPORT INFORMATION
  Report Type: Spontaneous
  Country: US (occurrence: US)
  Receive Date: 20250404
  Receipt Date: 20250404
  Transmission Date: 20250717
  Serious: No
  Sender: CALLIDITAS THERAPEUTICS
  Company Number: US-Calliditas-2024CAL01533

PATIENT
  Age: 63 Year
  Sex: Male
  Weight: 98.3 kg

DRUGS (1)
  1. TARPEYO [Suspect]
     Active Substance: BUDESONIDE
     Indication: IgA nephropathy
     Route: 048
     Dates: start: 202406

REACTIONS (4)
  - Headache [Unknown]
  - Blood pressure diastolic increased [Unknown]
  - Dizziness [Unknown]
  - Rash macular [Not Recovered/Not Resolved]
